FAERS Safety Report 6069041-5 (Version None)
Quarter: 2009Q1

REPORT INFORMATION
  Report Type: 
  Country: None (occurrence: None)
  Receive Date: 20090206
  Receipt Date: 20090129
  Transmission Date: 20090719
  Serious: Yes (Death)
  Sender: FDA-Public Use
  Company Number: IN-BAXTER-2008BH013712

PATIENT
  Age: 81 Year
  Sex: Female
  Weight: 67 kg

DRUGS (6)
  1. DIANEAL [Suspect]
     Indication: RENAL FAILURE CHRONIC
     Route: 033
     Dates: start: 20081101, end: 20081209
  2. DIANEAL [Suspect]
     Route: 033
     Dates: start: 20081101, end: 20081209
  3. DIANEAL [Suspect]
     Route: 033
     Dates: start: 20051201, end: 20081101
  4. AMLONG [Concomitant]
     Indication: DRUG USE FOR UNKNOWN INDICATION
     Route: 065
     Dates: end: 20081209
  5. ZYLORIC [Concomitant]
     Indication: DRUG USE FOR UNKNOWN INDICATION
     Route: 065
     Dates: end: 20081209
  6. EPREX                                   /UNK/ [Concomitant]
     Indication: DRUG USE FOR UNKNOWN INDICATION
     Route: 065
     Dates: end: 20081209

REACTIONS (1)
  - CARDIAC ARREST [None]
